FAERS Safety Report 8226927-0 (Version None)
Quarter: 2012Q1

REPORT INFORMATION
  Report Type: 
  Country: None (occurrence: None)
  Receive Date: 20120322
  Receipt Date: 20110715
  Transmission Date: 20120608
  Serious: No
  Sender: FDA-Public Use
  Company Number: US-MYLANLABS-2011S1014912

PATIENT

DRUGS (1)
  1. DICLOFENAC SODIUM [Suspect]

REACTIONS (1)
  - DRUG INEFFECTIVE [None]
